FAERS Safety Report 19704338 (Version 3)
Quarter: 2021Q3

REPORT INFORMATION
  Report Type: Spontaneous
  Country: US (occurrence: US)
  Receive Date: 20210816
  Receipt Date: 20210923
  Transmission Date: 20211014
  Serious: No
  Sender: FDA-Public Use
  Company Number: US-AMGEN INC.-USASP2021123481

PATIENT
  Sex: Male

DRUGS (1)
  1. AIMOVIG [Suspect]
     Active Substance: ERENUMAB-AOOE
     Indication: VESTIBULAR MIGRAINE
     Dosage: UNK
     Route: 065
     Dates: start: 202107

REACTIONS (5)
  - Injection site haemorrhage [Unknown]
  - Constipation [Unknown]
  - Injection site mass [Recovered/Resolved]
  - Wrong technique in product usage process [Unknown]
  - Blood pressure abnormal [Unknown]

NARRATIVE: CASE EVENT DATE: 2021
